FAERS Safety Report 9198779 (Version 1)
Quarter: 2013Q1

REPORT INFORMATION
  Report Type: Spontaneous
  Country: FR (occurrence: FR)
  Receive Date: 20130329
  Receipt Date: 20130329
  Transmission Date: 20140127
  Serious: Yes (Hospitalization)
  Sender: FDA-Public Use
  Company Number: FR-PFIZER INC-2013094021

PATIENT
  Age: 57 Year
  Sex: Female

DRUGS (3)
  1. SALAZOPYRINE [Suspect]
     Indication: RHEUMATOID ARTHRITIS
     Dosage: UNK
     Route: 048
     Dates: start: 201301, end: 20130205
  2. LEVOTHYROX [Concomitant]
     Indication: HYPOTHYROIDISM
     Dosage: UNK
     Route: 048
     Dates: start: 2012, end: 20130205
  3. SEROPLEX [Concomitant]
     Dosage: UNK
     Route: 048
     Dates: end: 20130205

REACTIONS (3)
  - Hepatocellular injury [Recovered/Resolved]
  - Cholestasis [Recovered/Resolved]
  - Agranulocytosis [Recovered/Resolved]
